FAERS Safety Report 25375367 (Version 1)
Quarter: 2025Q2

REPORT INFORMATION
  Report Type: Spontaneous
  Country: US (occurrence: US)
  Receive Date: 20250529
  Receipt Date: 20250529
  Transmission Date: 20250716
  Serious: No
  Sender: VERTEX
  Company Number: US-VERTEX PHARMACEUTICALS-2025-008379

PATIENT
  Age: 73 Year
  Sex: Female

DRUGS (3)
  1. JOURNAVX [Suspect]
     Active Substance: SUZETRIGINE
     Indication: Product used for unknown indication
     Dosage: 100 MG (2 X 50MG, LOADING DOSE), SINGLE
     Route: 048
     Dates: start: 20250509, end: 20250509
  2. JOURNAVX [Suspect]
     Active Substance: SUZETRIGINE
     Dosage: 50 MG, BID
     Route: 048
     Dates: start: 202505, end: 202505
  3. JOURNAVX [Suspect]
     Active Substance: SUZETRIGINE
     Dosage: 100 MG (2 X 50MG, LOADING DOSE), SINGLE
     Route: 048
     Dates: start: 20250520

REACTIONS (3)
  - Headache [Unknown]
  - External ear pain [Unknown]
  - Incorrect dose administered [Unknown]

NARRATIVE: CASE EVENT DATE: 20250501
